FAERS Safety Report 5132931-1 (Version None)
Quarter: 2006Q4

REPORT INFORMATION
  Report Type: 
  Country: None (occurrence: None)
  Receive Date: 20061019
  Receipt Date: 20061019
  Transmission Date: 20070319
  Serious: No
  Sender: FDA-Public Use
  Company Number: None

PATIENT
  Age: 37 Year
  Sex: Male
  Weight: 113.3993 kg

DRUGS (1)
  1. COLGATE LUMINOUS TOOTH PASTE CRYSTAL CLEAN MINT COLGATE [Suspect]
     Dosage: SODIUM FLORIDE 0.24%

REACTIONS (1)
  - PHARMACEUTICAL PRODUCT COMPLAINT [None]
